FAERS Safety Report 22082990 (Version 4)
Quarter: 2024Q3

REPORT INFORMATION
  Report Type: Spontaneous
  Country: IT (occurrence: IT)
  Receive Date: 20230310
  Receipt Date: 20240806
  Transmission Date: 20241017
  Serious: Yes (Hospitalization, Other)
  Sender: AUROBINDO
  Company Number: IT-MLMSERVICE-20230208-4091768-1

PATIENT
  Age: 69 Year
  Sex: Female

DRUGS (13)
  1. ZOLPIDEM [Suspect]
     Active Substance: ZOLPIDEM TARTRATE
     Indication: Insomnia
     Dosage: 30 MILLIGRAM, ONCE A DAY (30/40 MG/DAY)
     Route: 065
  2. ZOLPIDEM [Suspect]
     Active Substance: ZOLPIDEM TARTRATE
     Indication: Anxiety
     Dosage: 40 MILLIGRAM, ONCE A DAY
     Route: 065
  3. ZOLPIDEM [Suspect]
     Active Substance: ZOLPIDEM TARTRATE
     Dosage: 50 MILLIGRAM, ONCE A DAY
     Route: 065
  4. ZOLPIDEM [Suspect]
     Active Substance: ZOLPIDEM TARTRATE
     Dosage: INCREASED UP TO 50 MG/DAY
     Route: 065
  5. ZOLPIDEM [Suspect]
     Active Substance: ZOLPIDEM TARTRATE
     Dosage: 40 MILLIGRAM, ONCE A DAY (30/40 MG/DAY)
     Route: 065
  6. ZOLPIDEM [Suspect]
     Active Substance: ZOLPIDEM TARTRATE
     Dosage: 50 MILLIGRAM, ONCE A DAY
     Route: 065
  7. ZOLPIDEM [Suspect]
     Active Substance: ZOLPIDEM TARTRATE
     Dosage: 10 MILLIGRAM, ONCE A DAY
     Route: 065
  8. ZOLPIDEM [Suspect]
     Active Substance: ZOLPIDEM TARTRATE
     Dosage: 15 MILLIGRAM, ONCE A DAY
     Route: 065
  9. ZOLPIDEM [Suspect]
     Active Substance: ZOLPIDEM TARTRATE
     Dosage: 40 MILLIGRAM, ONCE A DAY (40-50 MG/DAY)
     Route: 065
  10. CLONAZEPAM [Concomitant]
     Active Substance: CLONAZEPAM
     Indication: Product used for unknown indication
     Dosage: UNK (UP TO 2MG/DAY)
     Route: 065
  11. PREGABALIN [Concomitant]
     Active Substance: PREGABALIN
     Indication: Product used for unknown indication
     Dosage: UNK (UP TO 100MG/DAY)
     Route: 065
  12. TRIMIPRAMINE [Concomitant]
     Active Substance: TRIMIPRAMINE
     Indication: Product used for unknown indication
     Dosage: UNK (UP TO 40MG/DAY)
     Route: 065
  13. VALPROIC ACID [Concomitant]
     Active Substance: VALPROIC ACID
     Indication: Product used for unknown indication
     Dosage: UNK (UP TO 300MG/DAY)
     Route: 065

REACTIONS (10)
  - Mixed anxiety and depressive disorder [Recovering/Resolving]
  - Panic attack [Recovering/Resolving]
  - Loss of personal independence in daily activities [Recovered/Resolved]
  - Movement disorder [Recovered/Resolved]
  - Attention deficit hyperactivity disorder [Recovered/Resolved]
  - Intentional product misuse [Unknown]
  - Incorrect product administration duration [Unknown]
  - Drug abuse [Unknown]
  - Drug ineffective [Unknown]
  - Dyskinesia [Unknown]
